FAERS Safety Report 24792134 (Version 2)
Quarter: 2025Q3

REPORT INFORMATION
  Report Type: Spontaneous
  Country: US (occurrence: US)
  Receive Date: 20241231
  Receipt Date: 20250708
  Transmission Date: 20251021
  Serious: No
  Sender: SANOFI AVENTIS
  Company Number: US-SA-2024SA384358

PATIENT
  Age: 64 Year
  Sex: Male

DRUGS (1)
  1. DUPIXENT [Suspect]
     Active Substance: DUPILUMAB
     Indication: Neurodermatitis
     Dosage: 300 MG, QOW
     Route: 058
     Dates: start: 202408

REACTIONS (5)
  - Neurodermatitis [Unknown]
  - Pruritus [Unknown]
  - Skin swelling [Unknown]
  - Product dose omission issue [Unknown]
  - Therapeutic response shortened [Unknown]
